FAERS Safety Report 9909837 (Version 1)
Quarter: 2014Q1

REPORT INFORMATION
  Report Type: Spontaneous
  Country: US (occurrence: None)
  Receive Date: 20140212
  Receipt Date: 20140212
  Transmission Date: 20141002
  Serious: Yes (Death)
  Sender: FDA-Public Use
  Company Number: 2014020097

PATIENT
  Age: 59 Year
  Sex: Male

DRUGS (2)
  1. CARISOPRODOL (CARISOPRODOL) [Suspect]
  2. ALPRAZOLAM (ALPRAZOLAM) [Suspect]

REACTIONS (2)
  - Exposure via ingestion [None]
  - Completed suicide [None]
